FAERS Safety Report 13682641 (Version 2)
Quarter: 2017Q2

REPORT INFORMATION
  Report Type: Spontaneous
  Country: US (occurrence: US)
  Receive Date: 20170623
  Receipt Date: 20170623
  Transmission Date: 20170830
  Serious: No
  Sender: FDA-Public Use
  Company Number: US-MALLINCKRODT-T201603140

PATIENT
  Age: 75 Year
  Sex: Female

DRUGS (11)
  1. BACTRIM DS [Concomitant]
     Active Substance: SULFAMETHOXAZOLE\TRIMETHOPRIM
     Dosage: TAB 800-160
  2. METHOTREXATE. [Concomitant]
     Active Substance: METHOTREXATE
     Dosage: TAB 2.5 MG
  3. ILEVRO [Concomitant]
     Active Substance: NEPAFENAC
     Dosage: 0.3%
     Route: 047
  4. BRISDELLE [Concomitant]
     Active Substance: PAROXETINE MESYLATE
     Dosage: CAP 7.5MG
  5. DEXILANT [Concomitant]
     Active Substance: DEXLANSOPRAZOLE
     Dosage: CAP 60 MG DR
  6. H.P. ACTHAR [Suspect]
     Active Substance: CORTICOTROPIN
     Indication: PSORIATIC ARTHROPATHY
     Dosage: 80 U/ML; TWICE WEEKLY
     Route: 058
     Dates: start: 20160711
  7. RECLAST [Concomitant]
     Active Substance: ZOLEDRONIC ACID
     Dosage: 5/100 ML INJECTION
  8. LEVOTHYROXIN 0.05 MG KSA [Concomitant]
     Dosage: 0.05 MCG
  9. LIOTHYRONINE [Concomitant]
     Active Substance: LIOTHYRONINE
     Dosage: 5 MCG
  10. PAROXETINE. [Concomitant]
     Active Substance: PAROXETINE
     Dosage: 10 MG
  11. EXCEDRIN MIGRAINE [Concomitant]
     Active Substance: ACETAMINOPHEN\ASPIRIN\CAFFEINE
     Dosage: TAB

REACTIONS (2)
  - Pruritus [Not Recovered/Not Resolved]
  - Influenza like illness [Not Recovered/Not Resolved]

NARRATIVE: CASE EVENT DATE: 20160712
